FAERS Safety Report 14272494 (Version 3)
Quarter: 2017Q4

REPORT INFORMATION
  Report Type: Spontaneous
  Country: BE (occurrence: BE)
  Receive Date: 20171212
  Receipt Date: 20171227
  Transmission Date: 20180321
  Serious: Yes (Death, Hospitalization, Other)
  Sender: FDA-Public Use
  Company Number: PHHY2017BE182440

PATIENT
  Age: 68 Year
  Sex: Male
  Weight: 73 kg

DRUGS (12)
  1. AFINITOR [Suspect]
     Active Substance: EVEROLIMUS
     Indication: CARCINOID TUMOUR
     Dosage: UNK
     Route: 065
     Dates: start: 20170513
  2. AFINITOR [Suspect]
     Active Substance: EVEROLIMUS
     Dosage: HALF TABLET
     Route: 065
  3. AMARYLLE [Concomitant]
     Indication: PRODUCT USED FOR UNKNOWN INDICATION
     Dosage: 3 MG, 1 TABLET IN THE MORNING, HALF OF A TABLET IN THE EVENING
     Route: 048
  4. DUROGESIC [Concomitant]
     Active Substance: FENTANYL
     Indication: PRODUCT USED FOR UNKNOWN INDICATION
     Dosage: 50 UG, EVERY 72 HOURS
     Route: 065
  5. OMEPRAZOLE. [Concomitant]
     Active Substance: OMEPRAZOLE
     Indication: GASTRODUODENAL ULCER
     Dosage: 40 UNK, QD
     Route: 065
  6. LIPANTHYL [Concomitant]
     Active Substance: FENOFIBRATE
     Indication: PRODUCT USED FOR UNKNOWN INDICATION
     Route: 065
  7. IBUPROFEN. [Concomitant]
     Active Substance: IBUPROFEN
     Indication: PRODUCT USED FOR UNKNOWN INDICATION
     Route: 065
  8. OXINORM (OXYCODONE HYDROCHLORIDE) [Concomitant]
     Active Substance: OXYCODONE HYDROCHLORIDE
     Indication: BONE PAIN
     Dosage: 5 A 10 MG, 0 TO 2 TABLTE DAILY
     Route: 065
  9. ALLOPURINOL. [Concomitant]
     Active Substance: ALLOPURINOL
     Indication: PRODUCT USED FOR UNKNOWN INDICATION
     Dosage: 300 MG, UNK
     Route: 065
  10. DAFALGAN [Concomitant]
     Active Substance: ACETAMINOPHEN
     Indication: PRODUCT USED FOR UNKNOWN INDICATION
     Dosage: 1 G, PRN
     Route: 065
  11. SINTROM [Concomitant]
     Active Substance: ACENOCOUMAROL
     Indication: DEEP VEIN THROMBOSIS
     Dosage: ACCORDING INR
     Route: 065
     Dates: start: 1995
  12. CETIRIZINE [Concomitant]
     Active Substance: CETIRIZINE HYDROCHLORIDE
     Indication: PRURITUS
     Dosage: PRN, ATTENUATION SINCE SANDOSTATINE INJECTIONS
     Route: 065

REACTIONS (18)
  - Folliculitis [Unknown]
  - Haematocrit decreased [Unknown]
  - Generalised oedema [Unknown]
  - Nephrotic syndrome [Fatal]
  - Hypoalbuminaemia [Unknown]
  - Decreased appetite [Unknown]
  - Oedema [Unknown]
  - Ascites [Unknown]
  - C-reactive protein increased [Unknown]
  - Proteinuria [Unknown]
  - Haemoglobin decreased [Unknown]
  - Dysuria [Unknown]
  - Abdominal distension [Unknown]
  - Oedema peripheral [Unknown]
  - Product use in unapproved indication [Unknown]
  - Glomerulonephritis minimal lesion [Unknown]
  - Dyspnoea [Unknown]
  - Urine output decreased [Unknown]

NARRATIVE: CASE EVENT DATE: 20170708
